FAERS Safety Report 20008698 (Version 2)
Quarter: 2021Q4

REPORT INFORMATION
  Report Type: Report from Study
  Country: TR (occurrence: TR)
  Receive Date: 20211028
  Receipt Date: 20211103
  Transmission Date: 20220304
  Serious: Yes (Death, Other)
  Sender: FDA-Public Use
  Company Number: TR-ASTELLAS-2021US039437

PATIENT
  Age: 60 Year
  Sex: Male

DRUGS (2)
  1. BENDAMUSTINE HYDROCHLORIDE [Suspect]
     Active Substance: BENDAMUSTINE HYDROCHLORIDE
     Indication: Chronic lymphocytic leukaemia
     Dosage: (4 DOSES)
     Route: 042
  2. RITUXIMAB [Suspect]
     Active Substance: RITUXIMAB
     Indication: Chronic lymphocytic leukaemia
     Dosage: (4 DOSES)
     Route: 065

REACTIONS (4)
  - Acute hepatic failure [Fatal]
  - Hepatitis B reactivation [Unknown]
  - Off label use [Unknown]
  - Product use issue [Unknown]
